FAERS Safety Report 8409663-7 (Version None)
Quarter: 2012Q2

REPORT INFORMATION
  Report Type: 
  Country: None (occurrence: None)
  Receive Date: 20120323
  Receipt Date: 20110307
  Transmission Date: 20120825
  Serious: Yes (Hospitalization, Other)
  Sender: FDA-Public Use
  Company Number: 163-21880-11020888

PATIENT
  Age: 90 Year
  Sex: Female
  Weight: 52 kg

DRUGS (17)
  1. TYLENOL EXTRA STRENGTH (PARACETAMOL)(UNKNOWN) [Concomitant]
  2. VITAMIN B-12 (CYANOCOBALAMIN)(1000 MICROGRAM, TABLETS) [Concomitant]
  3. REVLIMID [Suspect]
     Indication: MYELODYSPLASTIC SYNDROME
     Dosage: 5 MG, 1 IN 1 D, PO,  2.5 MG, 1 IN 2 D, PO, 5 MG, DAILY FOR 2 DAYS ON THEN 1 DAY OFF, PO
     Route: 048
     Dates: start: 20100701
  4. REVLIMID [Suspect]
     Indication: MYELODYSPLASTIC SYNDROME
     Dosage: 5 MG, 1 IN 1 D, PO,  2.5 MG, 1 IN 2 D, PO, 5 MG, DAILY FOR 2 DAYS ON THEN 1 DAY OFF, PO
     Route: 048
     Dates: start: 20080304
  5. ICAPS (ICAPS)(ENTERIC-COATED TABLET) [Concomitant]
  6. OMEGA 3 (FISH [Concomitant]
  7. MURINE (MURINE)(DROPS) [Concomitant]
  8. LUMIGAN (BIMATOPROST)(0.03 PERCENT, DROPS) [Concomitant]
  9. MAALOX (MAALOX)(SUSPENSION) [Concomitant]
  10. OXYBUTYNIN (OXYBUTYNIN)(5 MILLIGRAM,	TABLETS) [Concomitant]
  11. EXJADE (DEFERASIROX)(UNKNOWN) [Concomitant]
  12. ACTONEL (RISEDRONATE SODIUM)(150 MILLIGRAM, TABLETS) [Concomitant]
  13. KAOPECTATE (KAOPECTATE)(SUSPENSION) [Concomitant]
  14. MOM (MAGNESIUM HYDROXIDE)(SUSPENSION) [Concomitant]
  15. ROBITUSSIN (GUAIFENESIN W/DEXTROMETHORPHAN)(SYRUP) [Concomitant]
  16. CALCIUM 600 + VITAMIN D (CALCIUM D3 ^STADA^)(ENTERIC-COATED TABLET) [Concomitant]
  17. MULTIVITAMINS (MULTIVITAMINS)(TABLETS) [Concomitant]

REACTIONS (1)
  - ANAEMIA [None]
